FAERS Safety Report 24649289 (Version 1)
Quarter: 2024Q4

REPORT INFORMATION
  Report Type: Spontaneous
  Country: US (occurrence: US)
  Receive Date: 20241121
  Receipt Date: 20241121
  Transmission Date: 20250115
  Serious: No
  Sender: SANOFI AVENTIS
  Company Number: US-SA-2024SA336026

PATIENT
  Age: 74 Year
  Sex: Male

DRUGS (19)
  1. DUPIXENT [Suspect]
     Active Substance: DUPILUMAB
     Indication: Dermatitis atopic
     Dosage: 600 MG, 1X
     Route: 058
     Dates: start: 20241009, end: 20241009
  2. ASPIRIN [Concomitant]
     Active Substance: ASPIRIN
  3. B12 ACTIVE [Concomitant]
  4. BUTALBITAL [Concomitant]
     Active Substance: BUTALBITAL
  5. C COMPLEX [Concomitant]
  6. CALCIUM [Concomitant]
     Active Substance: CALCIUM
  7. CARISOPRODOL [Concomitant]
     Active Substance: CARISOPRODOL
  8. CLOBETASOL PROPIONATE [Concomitant]
     Active Substance: CLOBETASOL PROPIONATE
  9. VITAMIN D3 [Concomitant]
     Active Substance: CHOLECALCIFEROL
  10. FLUOCINONIDE [Concomitant]
     Active Substance: FLUOCINONIDE
  11. FOLIC ACID [Concomitant]
     Active Substance: FOLIC ACID
  12. MAGNESIUM [Concomitant]
     Active Substance: MAGNESIUM
  13. MELOXICAM [Concomitant]
     Active Substance: MELOXICAM
  14. ACETAMINOPHEN\OXYCODONE HYDROCHLORIDE [Concomitant]
     Active Substance: ACETAMINOPHEN\OXYCODONE HYDROCHLORIDE
  15. POTASSIUM [Concomitant]
     Active Substance: POTASSIUM
  16. REPATHA [Concomitant]
     Active Substance: EVOLOCUMAB
  17. RESTASIS [Concomitant]
     Active Substance: CYCLOSPORINE
  18. TACROLIMUS [Concomitant]
     Active Substance: TACROLIMUS
  19. ZINC [Concomitant]
     Active Substance: ZINC

REACTIONS (2)
  - Feeling abnormal [Not Recovered/Not Resolved]
  - Anger [Unknown]

NARRATIVE: CASE EVENT DATE: 20240101
